FAERS Safety Report 5961796-0 (Version None)
Quarter: 2008Q4

REPORT INFORMATION
  Report Type: 
  Country: None (occurrence: None)
  Receive Date: 20081121
  Receipt Date: 20081117
  Transmission Date: 20090506
  Serious: Yes (Hospitalization, Other)
  Sender: FDA-Public Use
  Company Number: CH-WYE-G02609908

PATIENT
  Age: 69 Year
  Sex: Male
  Weight: 82 kg

DRUGS (11)
  1. CYCLOSPORINE [Suspect]
     Indication: IMMUNOSUPPRESSION
     Route: 048
     Dates: start: 20051102
  2. RENITEN [Concomitant]
     Route: 048
  3. THEOLAIR [Concomitant]
     Route: 048
  4. ROCALTROL [Concomitant]
  5. ANDROLIN [Concomitant]
  6. HYGROTON [Concomitant]
  7. CATAPRESAN [Concomitant]
  8. OXIS TURBUHALER [Concomitant]
  9. VENTOLIN [Concomitant]
  10. CELLCEPT [Concomitant]
     Route: 048
  11. CALCIUM-SANDOZ [Concomitant]
     Route: 048

REACTIONS (12)
  - ATRIAL FIBRILLATION [None]
  - ATRIAL FLUTTER [None]
  - DIASTOLIC DYSFUNCTION [None]
  - DIZZINESS [None]
  - GENERAL PHYSICAL HEALTH DETERIORATION [None]
  - GOUT [None]
  - NASOPHARYNGITIS [None]
  - PNEUMONIA [None]
  - PYREXIA [None]
  - SYNCOPE [None]
  - URINARY RETENTION [None]
  - WEIGHT DECREASED [None]
